FAERS Safety Report 8544956-4 (Version None)
Quarter: 2012Q3

REPORT INFORMATION
  Report Type: 
  Country: None (occurrence: None)
  Receive Date: 20120727
  Receipt Date: 20120719
  Transmission Date: 20120928
  Serious: Yes (Life-Threatening, Hospitalization)
  Sender: FDA-Public Use
  Company Number: JP-JNJFOC-20120404776

PATIENT
  Sex: Male
  Weight: 71 kg

DRUGS (8)
  1. REMICADE [Suspect]
     Indication: CROHN'S DISEASE
     Route: 042
     Dates: start: 20120106
  2. GONADOTROPINS [Suspect]
     Indication: PRODUCT USED FOR UNKNOWN INDICATION
     Dosage: 3000 UNITS PER MONTH
     Route: 030
     Dates: start: 20100212, end: 20120116
  3. REMICADE [Suspect]
     Route: 042
     Dates: start: 20110126
  4. IMURAN [Suspect]
     Indication: PRODUCT USED FOR UNKNOWN INDICATION
     Route: 048
     Dates: start: 20100907
  5. IMURAN [Suspect]
     Route: 048
     Dates: start: 20110625
  6. REMICADE [Suspect]
     Dosage: 12 TOTAL INFUSIONS
     Route: 042
     Dates: start: 20100625
  7. PENTASA [Suspect]
     Indication: PRODUCT USED FOR UNKNOWN INDICATION
     Dosage: START DATE PRIOR TO 16-APR-1999
     Route: 048
  8. ELENTAL [Concomitant]
     Dosage: UNKNOWN DATE PRIOR TO 16-APR-1999
     Route: 048

REACTIONS (5)
  - ABDOMINAL PAIN [None]
  - PLATELET COUNT DECREASED [None]
  - LYMPHOCYTIC LEUKAEMIA [None]
  - WHITE BLOOD CELL COUNT INCREASED [None]
  - DIARRHOEA [None]
